FAERS Safety Report 8018329-7 (Version None)
Quarter: 2012Q1

REPORT INFORMATION
  Report Type: 
  Country: None (occurrence: None)
  Receive Date: 20120103
  Receipt Date: 20111223
  Transmission Date: 20120608
  Serious: Yes (Hospitalization)
  Sender: FDA-Public Use
  Company Number: US-BAYER-2011-051152

PATIENT
  Sex: Female
  Weight: 96.599 kg

DRUGS (6)
  1. FLUOXETINE HCL [Concomitant]
  2. ACETAMINOPHEN [Concomitant]
  3. YAZ [Suspect]
     Dosage: UNK
     Dates: start: 20050101, end: 20070101
  4. INDERAL [Concomitant]
  5. ACIPHEX [Concomitant]
  6. IBUPROFEN [Concomitant]

REACTIONS (5)
  - CHOLECYSTITIS CHRONIC [None]
  - CHOLELITHIASIS [None]
  - PAIN [None]
  - INJURY [None]
  - GALLBLADDER NON-FUNCTIONING [None]
